FAERS Safety Report 6490785-5 (Version None)
Quarter: 2009Q4

REPORT INFORMATION
  Report Type: 
  Country: None (occurrence: None)
  Receive Date: 20091211
  Receipt Date: 20091203
  Transmission Date: 20100525
  Serious: Yes (Other)
  Sender: FDA-Public Use
  Company Number: BR-ABBOTT-08P-020-0488605-00

PATIENT
  Sex: Female
  Weight: 71 kg

DRUGS (13)
  1. HUMIRA [Suspect]
     Indication: RHEUMATOID ARTHRITIS
     Route: 058
  2. METHOTREXATE [Concomitant]
     Indication: RHEUMATOID ARTHRITIS
     Route: 048
  3. CORTICOID [Concomitant]
     Indication: DRUG USE FOR UNKNOWN INDICATION
  4. FOLIC ACID [Concomitant]
     Indication: ANAEMIA
     Route: 048
  5. PREDNISONE TAB [Concomitant]
     Indication: RHEUMATOID ARTHRITIS
     Route: 048
  6. OMEPRAZOLE [Concomitant]
     Indication: GASTRIC DISORDER
     Route: 048
  7. RANITIDINE [Concomitant]
     Indication: GASTRIC DISORDER
     Route: 048
  8. RIVOTRIL [Concomitant]
     Indication: DEPRESSION
     Route: 048
  9. PAROXETINE [Concomitant]
     Indication: DEPRESSION
     Route: 048
  10. GARDENAL [Concomitant]
     Indication: DEPRESSION
     Route: 048
  11. VALPAKINE [Concomitant]
     Indication: CONVULSION
     Route: 048
  12. LAMITO (?) [Concomitant]
     Indication: CONVULSION
     Route: 048
  13. OSSOTRAT D (?) [Concomitant]
     Indication: MINERAL SUPPLEMENTATION
     Route: 048

REACTIONS (5)
  - APPLICATION SITE PAIN [None]
  - ARTHRALGIA [None]
  - CONVULSION [None]
  - DRUG INEFFECTIVE [None]
  - FATIGUE [None]
